FAERS Safety Report 7008675-8 (Version None)
Quarter: 2010Q3

REPORT INFORMATION
  Report Type: 
  Country: None (occurrence: None)
  Receive Date: 20100921
  Receipt Date: 20100902
  Transmission Date: 20110219
  Serious: Yes (Death, Other)
  Sender: FDA-Public Use
  Company Number: UK-ACCORD-003350

PATIENT
  Age: 58 Year
  Sex: Male

DRUGS (4)
  1. MYCOPHENOLATE MOFETIL [Suspect]
     Dosage: CHRONIC GRAFT VERSUS HOST DISEASE
  2. METHOTREXATE [Suspect]
     Indication: GRAFT VERSUS HOST DISEASE
  3. PREDNISOLONE [Suspect]
     Indication: ACUTE GRAFT VERSUS HOST DISEASE
  4. TACROLIMUS [Suspect]
     Indication: GRAFT VERSUS HOST DISEASE

REACTIONS (10)
  - ACUTE GRAFT VERSUS HOST DISEASE [None]
  - ACUTE GRAFT VERSUS HOST DISEASE IN INTESTINE [None]
  - ACUTE GRAFT VERSUS HOST DISEASE IN LIVER [None]
  - ACUTE GRAFT VERSUS HOST DISEASE IN SKIN [None]
  - CEREBRAL HAEMORRHAGE [None]
  - CYTOMEGALOVIRUS INFECTION [None]
  - EPSTEIN-BARR VIRUS ASSOCIATED LYMPHOPROLIFERATIVE DISORDER [None]
  - GRAFT VERSUS HOST DISEASE IN LUNG [None]
  - OFF LABEL USE [None]
  - THROMBOTIC MICROANGIOPATHY [None]
